FAERS Safety Report 9021985 (Version 1)
Quarter: 2013Q1

REPORT INFORMATION
  Report Type: Spontaneous
  Country: NL (occurrence: NL)
  Receive Date: 20130118
  Receipt Date: 20130118
  Transmission Date: 20140127
  Serious: Yes (Hospitalization)
  Sender: FDA-Public Use
  Company Number: PHHY2012NL083349

PATIENT
  Age: 64 Year
  Sex: Female

DRUGS (2)
  1. TOBI [Suspect]
     Indication: PSEUDOMONAS INFECTION
     Dosage: UNK
  2. INHALATION [Concomitant]
     Dosage: UNK

REACTIONS (7)
  - Infection [Unknown]
  - Rib fracture [Unknown]
  - Drug resistance [Unknown]
  - Dizziness [Recovered/Resolved with Sequelae]
  - Cough [Recovered/Resolved with Sequelae]
  - Dyspnoea [Recovered/Resolved with Sequelae]
  - Drug ineffective [Unknown]
